FAERS Safety Report 12465632 (Version 1)
Quarter: 2016Q2

REPORT INFORMATION
  Report Type: Spontaneous
  Country: PT (occurrence: PT)
  Receive Date: 20160614
  Receipt Date: 20160614
  Transmission Date: 20160815
  Serious: Yes (Other)
  Sender: FDA-Public Use
  Company Number: PT-WATSON-2016-12268

PATIENT
  Age: 74 Year
  Sex: Female

DRUGS (1)
  1. ROPINIROLE (UNKNOWN) [Suspect]
     Active Substance: ROPINIROLE
     Indication: PARKINSON^S DISEASE
     Dosage: 4 MG, DAILY
     Route: 065

REACTIONS (1)
  - Parkinson^s disease psychosis [Recovered/Resolved]
